FAERS Safety Report 24961195 (Version 2)
Quarter: 2025Q1

REPORT INFORMATION
  Report Type: Report from Study
  Country: AU (occurrence: AU)
  Receive Date: 20250212
  Receipt Date: 20250218
  Transmission Date: 20250409
  Serious: No
  Sender: ROCHE
  Company Number: AU-002147023-NVSC2023AU038356

PATIENT
  Age: 25 Year
  Sex: Male

DRUGS (4)
  1. XOLAIR [Suspect]
     Active Substance: OMALIZUMAB
     Indication: Male orgasmic disorder
     Dosage: 300 MG, (EVERY 4 WEEKS)
     Route: 058
     Dates: start: 20221114
  2. XOLAIR [Suspect]
     Active Substance: OMALIZUMAB
     Dosage: 150 MG, BIW
     Route: 065
  3. XOLAIR [Suspect]
     Active Substance: OMALIZUMAB
     Dosage: 300 MG, EVERY 4 WEEKS
     Route: 065
  4. XOLAIR [Suspect]
     Active Substance: OMALIZUMAB
     Dosage: 300 MG, EVERY MONTH
     Route: 058

REACTIONS (4)
  - Therapeutic response shortened [Recovered/Resolved]
  - Haemorrhage [Unknown]
  - Headache [Unknown]
  - Musculoskeletal pain [Unknown]
